FAERS Safety Report 19946918 (Version 1)
Quarter: 2021Q4

REPORT INFORMATION
  Report Type: Other
  Country: GB (occurrence: GB)
  Receive Date: 20211013
  Receipt Date: 20211013
  Transmission Date: 20220303
  Serious: Yes (Other)
  Sender: FDA-Public Use
  Company Number: GB-AJANTA PHARMA USA INC.-2120494

PATIENT
  Age: 27 Year
  Sex: Female

DRUGS (2)
  1. LANSOPRAZOLE [Suspect]
     Active Substance: LANSOPRAZOLE
     Indication: Prophylaxis
  2. DOMPERIDONE [Suspect]
     Active Substance: DOMPERIDONE

REACTIONS (2)
  - Kounis syndrome [Recovered/Resolved]
  - Electrocardiogram QT prolonged [Recovered/Resolved]
